FAERS Safety Report 8087873-9 (Version None)
Quarter: 2012Q1

REPORT INFORMATION
  Report Type: 
  Country: None (occurrence: None)
  Receive Date: 20120128
  Receipt Date: 20110409
  Transmission Date: 20120608
  Serious: No
  Sender: FDA-Public Use
  Company Number: US-ABBOTT-11P-163-0718038-00

PATIENT
  Age: 48 Year
  Sex: Female

DRUGS (8)
  1. FOLIC ACID [Concomitant]
     Indication: RHEUMATOID ARTHRITIS
     Dosage: 6 DAYS OUT OF 7
  2. METHOTREXATE [Concomitant]
     Indication: RHEUMATOID ARTHRITIS
     Route: 050
  3. HUMIRA [Suspect]
     Indication: RHEUMATOID ARTHRITIS
     Dates: start: 20110301
  4. PANTOPRAZOLE [Concomitant]
     Indication: RHEUMATOID ARTHRITIS
  5. HYDROCHLOROTHIAZIDE [Concomitant]
     Indication: BLOOD PRESSURE INCREASED
  6. TRAMADOL HYDROCHLORIDE/ACETAMINOPHEN [Concomitant]
     Indication: PAIN
     Dosage: 35.5MG/325
  7. CELEBREX [Concomitant]
     Indication: RHEUMATOID ARTHRITIS
  8. PERINDOPRIL ERBUMINE [Concomitant]
     Indication: BLOOD PRESSURE

REACTIONS (1)
  - ORAL PAIN [None]
